FAERS Safety Report 23260977 (Version 1)
Quarter: 2023Q4

REPORT INFORMATION
  Report Type: Spontaneous
  Country: US (occurrence: US)
  Receive Date: 20231205
  Receipt Date: 20231205
  Transmission Date: 20240110
  Serious: No
  Sender: FDA-Public Use
  Company Number: US-002147023-NVSC2023US258082

PATIENT
  Age: 77 Year
  Sex: Male

DRUGS (3)
  1. PLUVICTO [Suspect]
     Active Substance: LUTETIUM LU-177 VIPIVOTIDE TETRAXETAN
     Indication: Positron emission tomogram prostate
     Dosage: 200 MIILICURIES (EVERY 6 WEEKS FOR 6 CYCLES)
     Route: 042
     Dates: start: 20231025
  2. PLUVICTO [Suspect]
     Active Substance: LUTETIUM LU-177 VIPIVOTIDE TETRAXETAN
     Indication: Hormone-refractory prostate cancer
  3. METFORMIN [Concomitant]
     Active Substance: METFORMIN HYDROCHLORIDE
     Indication: Diabetes mellitus
     Dosage: UNK
     Route: 065

REACTIONS (1)
  - Nail discolouration [Unknown]

NARRATIVE: CASE EVENT DATE: 20231027
